FAERS Safety Report 6616745-9 (Version None)
Quarter: 2010Q1

REPORT INFORMATION
  Report Type: 
  Country: None (occurrence: None)
  Receive Date: 20100305
  Receipt Date: 20100223
  Transmission Date: 20100710
  Serious: Yes (Death)
  Sender: FDA-Public Use
  Company Number: DE-GENENTECH-298322

PATIENT
  Age: 68 Year
  Sex: Female
  Weight: 60.4 kg

DRUGS (9)
  1. RITUXIMAB [Suspect]
     Indication: CHRONIC LYMPHOCYTIC LEUKAEMIA
     Dosage: 375 MG/M2, 1/WEEK
     Route: 042
     Dates: start: 20081001, end: 20081101
  2. RITUXIMAB [Suspect]
     Dosage: 645 MG, Q3W
     Route: 042
     Dates: start: 20081219, end: 20090109
  3. CYCLOPHOSPHAMIDE [Concomitant]
     Indication: CHRONIC LYMPHOCYTIC LEUKAEMIA
     Dosage: UNK
     Route: 065
  4. DOXORUBICIN [Concomitant]
     Indication: CHRONIC LYMPHOCYTIC LEUKAEMIA
     Dosage: UNK
     Route: 065
  5. PREDNISOLONE [Concomitant]
     Indication: CHRONIC LYMPHOCYTIC LEUKAEMIA
     Dosage: UNK
     Route: 065
  6. VINCRISTINE [Concomitant]
     Indication: CHRONIC LYMPHOCYTIC LEUKAEMIA
     Dosage: UNK
     Route: 065
  7. FENISTIL [Concomitant]
     Indication: PREMEDICATION
     Dosage: 4 MG, 1/WEEK
     Dates: start: 20081219, end: 20090109
  8. RANITIDINE HCL [Concomitant]
     Indication: PREMEDICATION
     Dosage: 50 MG, UNK
     Route: 042
     Dates: start: 20081219, end: 20090109
  9. PARACETAMOL [Concomitant]
     Indication: PREMEDICATION
     Dosage: 500 MG, UNK
     Route: 048
     Dates: start: 20081219, end: 20090109

REACTIONS (3)
  - CHRONIC LYMPHOCYTIC LEUKAEMIA RECURRENT [None]
  - MALIGNANT NEOPLASM PROGRESSION [None]
  - NEOPLASM MALIGNANT [None]
